FAERS Safety Report 11175573 (Version 1)
Quarter: 2015Q2

REPORT INFORMATION
  Report Type: Spontaneous
  Country: US (occurrence: US)
  Receive Date: 20150609
  Receipt Date: 20150609
  Transmission Date: 20150821
  Serious: No
  Sender: FDA-Public Use
  Company Number: US-TEVA-568844USA

PATIENT
  Sex: Female

DRUGS (1)
  1. ACTIQ [Suspect]
     Active Substance: FENTANYL CITRATE
     Indication: MIGRAINE
     Dosage: 1600MCG UP TO FIVE TIMES DAILY
     Route: 048
     Dates: start: 2002

REACTIONS (2)
  - Product use issue [Unknown]
  - Weight increased [Not Recovered/Not Resolved]
